FAERS Safety Report 4970884-7 (Version None)
Quarter: 2006Q2

REPORT INFORMATION
  Report Type: 
  Country: None (occurrence: None)
  Receive Date: 20060406
  Receipt Date: 20060330
  Transmission Date: 20061013
  Serious: Yes (Life-Threatening, Hospitalization, Disabling, Other)
  Sender: FDA-Public Use
  Company Number: 200610379BNE

PATIENT
  Age: 77 Year
  Sex: Male

DRUGS (13)
  1. CIPROFLOXACIN HCL [Suspect]
     Indication: LOWER RESPIRATORY TRACT INFECTION
     Dosage: 500 MG, BID, ORAL
     Route: 048
     Dates: start: 20060210, end: 20060214
  2. ITRACONAZOLE [Concomitant]
  3. SPIRVIA [Concomitant]
  4. ADCAL-D3 [Concomitant]
  5. PREDNISOLONE [Concomitant]
  6. FENTANYL [Concomitant]
  7. SEVERDOL [Concomitant]
  8. ISOSORBIDE [Concomitant]
  9. CAPTOPRIL [Concomitant]
  10. CLOPIDOGREL [Concomitant]
  11. FOSAMAX [Concomitant]
  12. SERETIDE MITE [Concomitant]
  13. SALBUTAMOL [Concomitant]

REACTIONS (2)
  - DRUG INEFFECTIVE [None]
  - STATUS EPILEPTICUS [None]
